FAERS Safety Report 6307667-1 (Version None)
Quarter: 2009Q3

REPORT INFORMATION
  Report Type: 
  Country: None (occurrence: None)
  Receive Date: 20090813
  Receipt Date: 20090805
  Transmission Date: 20100115
  Serious: Yes (Hospitalization)
  Sender: FDA-Public Use
  Company Number: PHHO2009KR09678

PATIENT
  Sex: Female
  Weight: 65.5 kg

DRUGS (3)
  1. ZOLEDRONATE T29581+TTS [Suspect]
     Indication: OSTEONECROSIS
     Dosage: 5 MG
     Route: 042
     Dates: start: 20090619
  2. VITAMIN D [Concomitant]
  3. CALCIUM [Concomitant]

REACTIONS (4)
  - DISEASE PROGRESSION [None]
  - DRUG INEFFECTIVE [None]
  - HIP ARTHROPLASTY [None]
  - OSTEONECROSIS [None]
